FAERS Safety Report 14900541 (Version 2)
Quarter: 2018Q2

REPORT INFORMATION
  Report Type: Spontaneous
  Country: US (occurrence: US)
  Receive Date: 20180516
  Receipt Date: 20180518
  Transmission Date: 20180711
  Serious: No
  Sender: FDA-Public Use
  Company Number: US-PFIZER INC-2017406967

PATIENT
  Age: 10 Year
  Sex: Male
  Weight: 28.12 kg

DRUGS (4)
  1. GENOTROPIN [Suspect]
     Active Substance: SOMATROPIN
     Indication: GROWTH HORMONE DEFICIENCY
     Dosage: 1.8 MG, DAILY
     Dates: start: 201409
  2. GENOTROPIN [Suspect]
     Active Substance: SOMATROPIN
     Indication: HEAD CIRCUMFERENCE ABNORMAL
     Dosage: 2.2 MG, DAILY [ONE INJECTION]
     Dates: start: 201412
  3. GENOTROPIN [Suspect]
     Active Substance: SOMATROPIN
     Indication: GROWTH HORMONE DEFICIENCY
     Dosage: 2.2 MG, DAILY [ONE INJECTION]
     Dates: start: 201412
  4. GENOTROPIN [Suspect]
     Active Substance: SOMATROPIN
     Indication: HEAD CIRCUMFERENCE ABNORMAL

REACTIONS (1)
  - Drug resistance [Unknown]
